FAERS Safety Report 7116181-5 (Version None)
Quarter: 2010Q4

REPORT INFORMATION
  Report Type: 
  Country: None (occurrence: None)
  Receive Date: 20101122
  Receipt Date: 20101117
  Transmission Date: 20110411
  Serious: Yes (Other)
  Sender: FDA-Public Use
  Company Number: PHHY2010US78369

PATIENT
  Sex: Male

DRUGS (2)
  1. GILENYA [Suspect]
     Dosage: 1 DF, QD
     Route: 048
  2. PREDNISONE [Concomitant]
     Dosage: UNK

REACTIONS (3)
  - GLOSSODYNIA [None]
  - OROPHARYNGEAL PAIN [None]
  - TONGUE DISORDER [None]
